FAERS Safety Report 12195670 (Version 1)
Quarter: 2016Q1

REPORT INFORMATION
  Report Type: Spontaneous
  Country: SE (occurrence: SE)
  Receive Date: 20160321
  Receipt Date: 20160321
  Transmission Date: 20160526
  Serious: Yes (Hospitalization, Other)
  Sender: FDA-Public Use
  Company Number: SE-ELI_LILLY_AND_COMPANY-SE201403010279

PATIENT
  Age: 77 Year
  Sex: Female

DRUGS (21)
  1. ENALAPRIL ACTAVIS [Concomitant]
     Active Substance: ENALAPRIL
  2. LAMOTRIGIN ACTAVIS [Concomitant]
     Active Substance: LAMOTRIGINE
  3. ZOPIKLON MYLAN [Concomitant]
  4. OXYNORM [Concomitant]
     Active Substance: OXYCODONE HYDROCHLORIDE
  5. ORALOVITE [Concomitant]
  6. STESOLID [Concomitant]
     Active Substance: DIAZEPAM
  7. MIRTAZAPIN ACTAVIS [Concomitant]
     Active Substance: MIRTAZAPINE
  8. FORSTEO [Suspect]
     Active Substance: TERIPARATIDE
     Indication: OSTEOPOROSIS
     Dosage: UNK, UNKNOWN
     Route: 065
     Dates: start: 20130918, end: 20140311
  9. CIPRALEX [Concomitant]
     Active Substance: ESCITALOPRAM OXALATE
  10. MOVICOL [Concomitant]
     Active Substance: POLYETHYLENE GLYCOL 3350\POTASSIUM CHLORIDE\SODIUM BICARBONATE\SODIUM CHLORIDE
     Route: 048
  11. FOLACIN                            /00024201/ [Concomitant]
     Active Substance: FOLIC ACID
  12. IMPUGAN                            /00032601/ [Concomitant]
  13. NICOTINELL                         /01033301/ [Concomitant]
     Dosage: 14 MG, QD
     Route: 062
  14. INNOVAIR [Concomitant]
     Active Substance: BECLOMETHASONE DIPROPIONATE\FORMOTEROL
     Route: 055
  15. SPIRIVA [Concomitant]
     Active Substance: TIOTROPIUM BROMIDE MONOHYDRATE
     Route: 055
  16. NOVALUCOL                          /00018001/ [Concomitant]
  17. GAVISCON                           /00237601/ [Concomitant]
     Active Substance: ALUMINUM HYDROXIDE\MAGNESIUM CARBONATE
     Route: 048
  18. PRIMPERAN [Concomitant]
     Active Substance: METOCLOPRAMIDE HYDROCHLORIDE
  19. ACETYLCYSTEIN MYLAN [Concomitant]
  20. OMEPRAZOL ACTAVIS [Concomitant]
     Active Substance: OMEPRAZOLE
  21. OXYCONTIN [Concomitant]
     Active Substance: OXYCODONE HYDROCHLORIDE

REACTIONS (2)
  - Blood calcium decreased [Unknown]
  - Hypercalcaemia [Recovered/Resolved]

NARRATIVE: CASE EVENT DATE: 20140303
